FAERS Safety Report 6030995-4 (Version None)
Quarter: 2009Q1

REPORT INFORMATION
  Report Type: 
  Country: None (occurrence: None)
  Receive Date: 20090106
  Receipt Date: 20090106
  Transmission Date: 20090719
  Serious: Yes (Other)
  Sender: FDA-Public Use
  Company Number: None

PATIENT
  Age: 64 Year
  Sex: Male
  Weight: 103 kg

DRUGS (33)
  1. REVLIMID [Suspect]
     Indication: MANTLE CELL LYMPHOMA
     Dosage: 10 MG ONCE DAILY PM PO
     Route: 048
     Dates: start: 20080719, end: 20080801
  2. ACETAMINOPHEN [Concomitant]
  3. ACETAMINOPHEN AND CODEINE PHOSPHATE [Concomitant]
  4. MYLANTA II [Concomitant]
  5. ALBUTEROL [Concomitant]
  6. DUONEB [Concomitant]
  7. CARVEDILOL [Concomitant]
  8. CYCLOPHOSPHAMIDE [Concomitant]
  9. DEXAMETHASONE TAB [Concomitant]
  10. DIPHENHYDRAMINE HCL [Concomitant]
  11. ENOXAPARIN SODIUM [Concomitant]
  12. FAMOTIDINE [Concomitant]
  13. FENTANYL [Concomitant]
  14. FILGRASTIM [Concomitant]
  15. LASIX [Concomitant]
  16. KYTRIL [Concomitant]
  17. HEPARIN [Concomitant]
  18. IMMUNE GLOBULIN NOS [Concomitant]
  19. LEVOFLOXACIN [Concomitant]
  20. LEVOTHYROXINE SODIUM [Concomitant]
  21. LOPERIMEDE [Concomitant]
  22. MILK OF MAGNESIA [Concomitant]
  23. MAGNESIUM SULFATE [Concomitant]
  24. METHYLPREDNISOLONE 16MG TAB [Concomitant]
  25. SINGULAIR [Concomitant]
  26. OMEPRAZOLE [Concomitant]
  27. ZOFRAN [Concomitant]
  28. OXYCODONE [Concomitant]
  29. POTASSIUM CHLORIDE [Concomitant]
  30. PREDNISONE TAB [Concomitant]
  31. RITUXIMAB [Concomitant]
  32. ADVAIR DISKUS 100/50 [Concomitant]
  33. SENNA/DOCUSATE [Concomitant]

REACTIONS (2)
  - BLOOD COUNT ABNORMAL [None]
  - WHITE BLOOD CELL COUNT DECREASED [None]
